FAERS Safety Report 9420459 (Version 1)
Quarter: 2013Q3

REPORT INFORMATION
  Report Type: Spontaneous
  Country: US (occurrence: US)
  Receive Date: 20130725
  Receipt Date: 20130725
  Transmission Date: 20140515
  Serious: No
  Sender: FDA-Public Use
  Company Number: US-BAYER-2013-089807

PATIENT
  Sex: Female
  Weight: 68 kg

DRUGS (4)
  1. BETASERON [Suspect]
     Dosage: 3 MG, UNK
  2. OMEPRAZOLE [Concomitant]
     Dosage: 20 MG, UNK
  3. WELLBUTRIN [Concomitant]
     Dosage: 75 MG, UNK
  4. LORAZEPAM [Concomitant]
     Dosage: 0.5 MG, UNK

REACTIONS (1)
  - Drug ineffective [Unknown]
